FAERS Safety Report 22521384 (Version 1)
Quarter: 2023Q2

REPORT INFORMATION
  Report Type: Spontaneous
  Country: US (occurrence: US)
  Receive Date: 20230605
  Receipt Date: 20230605
  Transmission Date: 20230722
  Serious: No
  Sender: FDA-Public Use
  Company Number: US-PFIZER INC-PV202300098552

PATIENT

DRUGS (2)
  1. CIBINQO [Interacting]
     Active Substance: ABROCITINIB
     Dosage: UNK
  2. DULOXETINE [Interacting]
     Active Substance: DULOXETINE
     Dosage: UNK

REACTIONS (2)
  - Drug interaction [Unknown]
  - Platelet disorder [Unknown]
